FAERS Safety Report 6169735-7 (Version None)
Quarter: 2009Q2

REPORT INFORMATION
  Report Type: 
  Country: None (occurrence: None)
  Receive Date: 20090428
  Receipt Date: 20090423
  Transmission Date: 20091009
  Serious: Yes (Death)
  Sender: FDA-Public Use
  Company Number: SI-ROCHE-629050

PATIENT
  Sex: Male

DRUGS (2)
  1. CAPECITABINE [Suspect]
     Indication: COLON CANCER
     Dosage: DOSE: 2000+ 2500 MG. MOST RECENT DOSE: MARCH 2009
     Route: 048
     Dates: start: 20090228, end: 20090301
  2. BEVACIZUMAB [Suspect]
     Indication: COLON CANCER
     Dosage: MOST RECENT DOSE: 27 FEB 2009
     Route: 042
     Dates: start: 20090227, end: 20090227

REACTIONS (1)
  - SEPSIS [None]
